FAERS Safety Report 6112228-3 (Version None)
Quarter: 2009Q1

REPORT INFORMATION
  Report Type: 
  Country: None (occurrence: None)
  Receive Date: 20090310
  Receipt Date: 20090304
  Transmission Date: 20090719
  Serious: Yes (Life-Threatening)
  Sender: FDA-Public Use
  Company Number: 2009-192691-NL

PATIENT
  Age: 61 Year
  Sex: Male

DRUGS (5)
  1. VECURONIUM BROMIDE [Suspect]
     Indication: ANAESTHESIA
     Dosage: INTRAVENOUS (NOS)
     Route: 042
     Dates: start: 20090209, end: 20090209
  2. FENTANYL-25 [Concomitant]
  3. MIDAZOLAM HCL [Concomitant]
  4. PROPOFOL [Concomitant]
  5. OXYTETRACYCLINE [Concomitant]

REACTIONS (1)
  - ANAPHYLACTOID REACTION [None]
